FAERS Safety Report 5165603-8 (Version None)
Quarter: 2006Q4

REPORT INFORMATION
  Report Type: 
  Country: None (occurrence: None)
  Receive Date: 20061206
  Receipt Date: 20061130
  Transmission Date: 20070319
  Serious: Yes (Hospitalization)
  Sender: FDA-Public Use
  Company Number: GB-ROCHE-473174

PATIENT
  Age: 52 Year
  Sex: Male

DRUGS (4)
  1. CAPECITABINE [Suspect]
     Dosage: TAKEN ON DAYS 1-14 EVERY 3 WEEKS.
     Route: 048
     Dates: start: 20060615
  2. OXALIPLATIN [Suspect]
     Route: 042
     Dates: start: 20060615, end: 20061012
  3. GRANISETRON [Concomitant]
     Dosage: DURATION REPORTED AS A FEW MINUTES.
     Route: 042
     Dates: start: 20061012, end: 20061012
  4. DEXAMETHASONE [Concomitant]
     Dosage: DURATION REPORTED AS A FEW MINUTES.
     Route: 042
     Dates: start: 20061012, end: 20061012

REACTIONS (4)
  - CHOLINERGIC SYNDROME [None]
  - DIARRHOEA [None]
  - HYPERHIDROSIS [None]
  - VOMITING [None]
